FAERS Safety Report 18123645 (Version 1)
Quarter: 2020Q3

REPORT INFORMATION
  Report Type: Spontaneous
  Country: US (occurrence: US)
  Receive Date: 20200807
  Receipt Date: 20200807
  Transmission Date: 20201103
  Serious: Yes (Hospitalization)
  Sender: FDA-Public Use
  Company Number: None

PATIENT
  Age: 73 Year
  Sex: Female
  Weight: 97.9 kg

DRUGS (1)
  1. DASATINIB. [Suspect]
     Active Substance: DASATINIB
     Indication: CHRONIC MYELOID LEUKAEMIA
     Route: 048
     Dates: start: 20200609, end: 20200617

REACTIONS (5)
  - Dyspnoea [None]
  - Pleural effusion [None]
  - Gastrointestinal haemorrhage [None]
  - Condition aggravated [None]
  - Hypoxia [None]

NARRATIVE: CASE EVENT DATE: 20200617
